FAERS Safety Report 20657088 (Version 1)
Quarter: 2022Q1

REPORT INFORMATION
  Report Type: Spontaneous
  Country: US (occurrence: None)
  Receive Date: 20220331
  Receipt Date: 20220331
  Transmission Date: 20220423
  Serious: No
  Sender: FDA-Public Use
  Company Number: 2022A124403

PATIENT
  Sex: Male
  Weight: 64.9 kg

DRUGS (1)
  1. PULMICORT FLEXHALER [Suspect]
     Active Substance: BUDESONIDE
     Indication: Chronic obstructive pulmonary disease
     Dosage: 180 MCG ONE PUFF TWICE A DAY
     Route: 055

REACTIONS (3)
  - Memory impairment [Not Recovered/Not Resolved]
  - Confusional state [Not Recovered/Not Resolved]
  - Device malfunction [Unknown]
